FAERS Safety Report 7409782-8 (Version None)
Quarter: 2011Q2

REPORT INFORMATION
  Report Type: 
  Country: None (occurrence: None)
  Receive Date: 20110412
  Receipt Date: 20110321
  Transmission Date: 20111010
  Serious: Yes (Other)
  Sender: FDA-Public Use
  Company Number: US-BAYER-201021402NA

PATIENT
  Age: 28 Year
  Sex: Female
  Weight: 95.238 kg

DRUGS (2)
  1. MOTRIN [Concomitant]
  2. YASMIN [Suspect]
     Indication: ACNE
     Dosage: UNK
     Route: 048
     Dates: start: 20050101, end: 20060615

REACTIONS (1)
  - THROMBOSIS [None]
